FAERS Safety Report 9624890 (Version 1)
Quarter: 2013Q4

REPORT INFORMATION
  Report Type: Spontaneous
  Country: JP (occurrence: JP)
  Receive Date: 20131016
  Receipt Date: 20131016
  Transmission Date: 20140711
  Serious: Yes (Other)
  Sender: FDA-Public Use
  Company Number: PHHY2013JP112925

PATIENT
  Sex: 0

DRUGS (5)
  1. RIBAVIRIN [Suspect]
     Indication: HEPATITIS C
     Dates: start: 200507, end: 200606
  2. RIBAVIRIN [Suspect]
     Dosage: 600 MG, DAILY
     Dates: start: 201104
  3. PEGYLATED INTERFERON ALFA-2A [Suspect]
     Indication: HEPATITIS C
     Dates: start: 200507, end: 200606
  4. PEGYLATED INTERFERON ALFA-2A [Suspect]
     Dosage: 180 UG, QW
     Dates: start: 201104
  5. ONE ALPHA [Suspect]
     Dosage: 1 UG, DAILY
     Dates: start: 201104, end: 201208

REACTIONS (4)
  - Vitiligo [Recovering/Resolving]
  - Skin depigmentation [Recovering/Resolving]
  - Leukoderma [Recovering/Resolving]
  - Hepatitis C [Unknown]
